FAERS Safety Report 9210051 (Version 1)
Quarter: 2013Q2

REPORT INFORMATION
  Report Type: Spontaneous
  Country: GB (occurrence: GB)
  Receive Date: 20130404
  Receipt Date: 20130404
  Transmission Date: 20140414
  Serious: Yes (Life-Threatening, Hospitalization, Disabling)
  Sender: FDA-Public Use
  Company Number: GB-AMGEN-GBRSP2013023480

PATIENT
  Age: 82 Year
  Sex: Female

DRUGS (6)
  1. ENBREL [Suspect]
     Indication: RHEUMATOID ARTHRITIS
     Dosage: 50 MG, WEEKLY
     Route: 058
     Dates: start: 20120820, end: 20130222
  2. METHOTREXATE [Concomitant]
     Dosage: UNK
  3. OMEPRAZOLE [Concomitant]
     Dosage: UNK
  4. FOLIC ACID [Concomitant]
     Dosage: UNK
  5. DIHYDROCODEINE [Concomitant]
     Dosage: UNK
  6. PARACETAMOL [Concomitant]
     Dosage: UNK

REACTIONS (5)
  - Endometrial adenocarcinoma [Not Recovered/Not Resolved]
  - Endometritis [Not Recovered/Not Resolved]
  - Hepatic lesion [Not Recovered/Not Resolved]
  - Sepsis [Not Recovered/Not Resolved]
  - Pyometra [Not Recovered/Not Resolved]
